FAERS Safety Report 5467933-9 (Version None)
Quarter: 2007Q3

REPORT INFORMATION
  Report Type: 
  Country: None (occurrence: None)
  Receive Date: 20070924
  Receipt Date: 20070913
  Transmission Date: 20080115
  Serious: Yes (Death, Hospitalization)
  Sender: FDA-Public Use
  Company Number: 2007SP018569

PATIENT
  Age: 40 Year
  Sex: Female

DRUGS (1)
  1. TEMODAL [Suspect]
     Indication: GLIOBLASTOMA MULTIFORME
     Dosage: 75 MG/M2; QD
     Dates: start: 20070701, end: 20070801

REACTIONS (3)
  - COMA [None]
  - NEUTROPENIA [None]
  - OPPORTUNISTIC INFECTION [None]
